FAERS Safety Report 6162792-3 (Version None)
Quarter: 2009Q2

REPORT INFORMATION
  Report Type: 
  Country: None (occurrence: None)
  Receive Date: 20090421
  Receipt Date: 20080723
  Transmission Date: 20091009
  Serious: No
  Sender: FDA-Public Use
  Company Number: US-ASTRAZENECA-2008UW15429

PATIENT
  Sex: Female

DRUGS (2)
  1. TOPROL-XL [Suspect]
     Route: 048
     Dates: start: 20050101
  2. STATIN MEDICATION [Suspect]

REACTIONS (3)
  - INJURY [None]
  - NIGHTMARE [None]
  - SLEEP TERROR [None]
